FAERS Safety Report 6331823-X (Version None)
Quarter: 2009Q3

REPORT INFORMATION
  Report Type: 
  Country: None (occurrence: None)
  Receive Date: 20090826
  Receipt Date: 20090812
  Transmission Date: 20100115
  Serious: Yes (Hospitalization)
  Sender: FDA-Public Use
  Company Number: 2009US004601

PATIENT
  Age: 43 Year
  Sex: Female

DRUGS (2)
  1. ALOXI [Suspect]
     Indication: PROPHYLAXIS OF NAUSEA AND VOMITING
     Dosage: 0.25 MG, SINGLE, INTRAVENOUS, 0.25 MG, SINGLE, INTRAVENOUS
     Route: 042
     Dates: start: 20090722, end: 20090722
  2. ALOXI [Suspect]
     Indication: PROPHYLAXIS OF NAUSEA AND VOMITING
     Dosage: 0.25 MG, SINGLE, INTRAVENOUS, 0.25 MG, SINGLE, INTRAVENOUS
     Route: 042
     Dates: start: 20090805, end: 20090805

REACTIONS (3)
  - BLEPHAROSPASM [None]
  - MUSCLE SPASMS [None]
  - SENSATION OF HEAVINESS [None]
